FAERS Safety Report 7917261-4 (Version None)
Quarter: 2011Q4

REPORT INFORMATION
  Report Type: 
  Country: None (occurrence: None)
  Receive Date: 20111116
  Receipt Date: 20111101
  Transmission Date: 20120403
  Serious: Yes (Other)
  Sender: FDA-Public Use
  Company Number: PHHY2011CA099445

PATIENT
  Age: 83 Year
  Sex: Male

DRUGS (3)
  1. SALAGEN [Suspect]
     Indication: DRY MOUTH
     Route: 048
     Dates: start: 20110921, end: 20110928
  2. GABAPENTIN [Concomitant]
     Indication: MUSCLE CONTRACTIONS INVOLUNTARY
     Dosage: 100 MG, QHS
     Route: 048
     Dates: start: 19990101
  3. LITHIUM CARBONATE [Concomitant]
     Indication: DEPRESSION
     Dosage: 300 MG IN MORNING AND 150 MG IN EVENING
     Route: 048
     Dates: start: 19850101

REACTIONS (7)
  - FATIGUE [None]
  - DRUG INEFFECTIVE [None]
  - CEREBRAL HAEMORRHAGE [None]
  - HEMIPARESIS [None]
  - SPEECH DISORDER [None]
  - MICTURITION URGENCY [None]
  - HYPERHIDROSIS [None]
